FAERS Safety Report 25250000 (Version 1)
Quarter: 2025Q2

REPORT INFORMATION
  Report Type: Spontaneous
  Country: US (occurrence: US)
  Receive Date: 20250429
  Receipt Date: 20250429
  Transmission Date: 20250717
  Serious: Yes (Hospitalization, Other)
  Sender: AUROBINDO
  Company Number: US-AUROBINDO-AUR-APL-2012-05647

PATIENT
  Age: 62 Year
  Sex: Male

DRUGS (3)
  1. CITALOPRAM HYDROBROMIDE [Interacting]
     Active Substance: CITALOPRAM HYDROBROMIDE
     Indication: Major depression
     Route: 065
  2. TRAMADOL [Interacting]
     Active Substance: TRAMADOL
     Indication: Musculoskeletal pain
     Dosage: 50 MG,3 TIMES A DAY,
     Route: 065
  3. BUPROPION HYDROCHLORIDE [Interacting]
     Active Substance: BUPROPION HYDROCHLORIDE
     Indication: Major depression
     Dosage: 150 MG,TWO TIMES A DAY,
     Route: 065

REACTIONS (11)
  - Serotonin syndrome [Recovered/Resolved]
  - Neuromyopathy [Recovered/Resolved]
  - Psychomotor hyperactivity [Recovered/Resolved]
  - Mental status changes [Recovered/Resolved]
  - Anxiety [Recovered/Resolved]
  - Tremor [Recovered/Resolved]
  - Hyperhidrosis [Recovered/Resolved]
  - Tachycardia [Recovered/Resolved]
  - Clonus [Recovered/Resolved]
  - Blood pressure increased [Recovered/Resolved]
  - Drug interaction [Recovered/Resolved]
